FAERS Safety Report 18197514 (Version 1)
Quarter: 2020Q3

REPORT INFORMATION
  Report Type: Report from Study
  Country: US (occurrence: US)
  Receive Date: 20200826
  Receipt Date: 20200826
  Transmission Date: 20201103
  Serious: No
  Sender: FDA-Public Use
  Company Number: US-IPSEN BIOPHARMACEUTICALS, INC.-2017-15462

PATIENT
  Age: 15 Year
  Sex: Male
  Weight: 37.6 kg

DRUGS (25)
  1. DYSPORT [Suspect]
     Active Substance: ABOBOTULINUMTOXINA
     Indication: CEREBRAL PALSY
  2. DEPAKOTE [Suspect]
     Active Substance: DIVALPROEX SODIUM
     Indication: SEIZURE
     Route: 048
     Dates: start: 20160310
  3. PROPOFOL. [Suspect]
     Active Substance: PROPOFOL
     Indication: GENERAL ANAESTHESIA
     Dates: start: 20171129, end: 20171129
  4. TRIHEXYPHENIDYL [Concomitant]
     Active Substance: TRIHEXYPHENIDYL
     Indication: MUSCLE SPASTICITY
     Dates: start: 20180215, end: 20181206
  5. ARTANE [Suspect]
     Active Substance: TRIHEXYPHENIDYL HYDROCHLORIDE
     Indication: MUSCLE SPASTICITY
     Route: 048
     Dates: end: 20180215
  6. FENTANYL. [Suspect]
     Active Substance: FENTANYL
     Indication: GENERAL ANAESTHESIA
     Dates: start: 20171129, end: 20171129
  7. DECADRON [Suspect]
     Active Substance: DEXAMETHASONE
     Indication: GENERAL ANAESTHESIA
     Dates: start: 20171129, end: 20171129
  8. ARTANE [Suspect]
     Active Substance: TRIHEXYPHENIDYL HYDROCHLORIDE
     Route: 048
     Dates: start: 20180215
  9. MELATONIN [Concomitant]
     Active Substance: MELATONIN
     Indication: INSOMNIA
     Dates: start: 201706, end: 20180215
  10. BACLOFEN. [Concomitant]
     Active Substance: BACLOFEN
     Indication: MUSCLE SPASTICITY
     Dates: start: 20181207, end: 20190725
  11. DYSPORT [Suspect]
     Active Substance: ABOBOTULINUMTOXINA
     Indication: CEREBRAL PALSY
  12. PRECEDEX [Suspect]
     Active Substance: DEXMEDETOMIDINE HYDROCHLORIDE
     Indication: GENERAL ANAESTHESIA
     Dates: start: 20171129, end: 20171129
  13. NITROUS OXIDE. [Suspect]
     Active Substance: NITROUS OXIDE
     Indication: GENERAL ANAESTHESIA
     Dates: start: 20171129, end: 20171129
  14. CITALOPRAN [Concomitant]
     Indication: ANXIETY
  15. DEPAKOTE [Suspect]
     Active Substance: DIVALPROEX SODIUM
     Route: 048
  16. CELEXA [Concomitant]
     Active Substance: CITALOPRAM HYDROBROMIDE
     Indication: HEADACHE
     Route: 048
  17. DYSPORT [Suspect]
     Active Substance: ABOBOTULINUMTOXINA
     Indication: CEREBRAL PALSY
     Dosage: 800 IU OUT OF WHICH 200 IU WERE INJECTED INTO HAMSTRING MUSCLE.
     Route: 030
     Dates: start: 20171129, end: 20171129
  18. DYSPORT [Suspect]
     Active Substance: ABOBOTULINUMTOXINA
     Indication: OFF LABEL USE
  19. ROBAXIN [Concomitant]
     Active Substance: METHOCARBAMOL
     Indication: MUSCLE SPASMS
     Dosage: PRN
     Dates: start: 20170126
  20. MELATONIN [Concomitant]
     Active Substance: MELATONIN
     Dates: start: 20180215
  21. DYSPORT [Suspect]
     Active Substance: ABOBOTULINUMTOXINA
     Indication: CEREBRAL PALSY
  22. ZOFRAN [Suspect]
     Active Substance: ONDANSETRON HYDROCHLORIDE
     Indication: GENERAL ANAESTHESIA
     Dates: start: 20171129, end: 20171129
  23. ISOFLURANE. [Suspect]
     Active Substance: ISOFLURANE
     Indication: GENERAL ANAESTHESIA
     Dates: start: 20171129, end: 20171129
  24. BACLOFEN. [Concomitant]
     Active Substance: BACLOFEN
     Dates: start: 20200408
  25. CITALOPRAN [Concomitant]
     Indication: HEADACHE
     Dates: start: 20181206

REACTIONS (4)
  - Intentional overdose [Unknown]
  - Off label use [Unknown]
  - Product preparation error [Unknown]
  - Dysphagia [Recovered/Resolved]

NARRATIVE: CASE EVENT DATE: 20171129
